FAERS Safety Report 4925246-5 (Version None)
Quarter: 2006Q1

REPORT INFORMATION
  Report Type: 
  Country: None (occurrence: None)
  Receive Date: 20060222
  Receipt Date: 20060222
  Transmission Date: 20060701
  Serious: No
  Sender: FDA-Public Use
  Company Number: None

PATIENT
  Age: 70 Year
  Sex: Female

DRUGS (9)
  1. PACLITAXEL [Suspect]
  2. ROSUVASTATIN [Concomitant]
  3. LORAZEPAM [Concomitant]
  4. MULTI-VITAMIN [Concomitant]
  5. ACETAMINOPHEN [Concomitant]
  6. NEUPOGEN [Concomitant]
  7. LEVOFLOXACIN [Concomitant]
  8. AMOXICILLIN/CLAVULANATE [Concomitant]
  9. NYSTATIN [Concomitant]

REACTIONS (3)
  - COMPUTERISED TOMOGRAM ABNORMAL [None]
  - PNEUMONITIS [None]
  - PULMONARY EMBOLISM [None]
